FAERS Safety Report 7642293-3 (Version None)
Quarter: 2011Q3

REPORT INFORMATION
  Report Type: 
  Country: None (occurrence: None)
  Receive Date: 20110722
  Receipt Date: 20110718
  Transmission Date: 20111222
  Serious: Yes (Other)
  Sender: FDA-Public Use
  Company Number: 201110895

PATIENT
  Sex: Male

DRUGS (1)
  1. LIORESAL [Suspect]
     Indication: MUSCLE SPASTICITY
     Dosage: SEE B5 MCG, DAILY, INTRATHECAL
     Route: 037

REACTIONS (11)
  - MALAISE [None]
  - ABDOMINAL PAIN [None]
  - DEVICE FAILURE [None]
  - DRUG WITHDRAWAL SYNDROME [None]
  - MUSCLE SPASMS [None]
  - DRUG TOLERANCE [None]
  - CONDITION AGGRAVATED [None]
  - HEADACHE [None]
  - CHILLS [None]
  - LOSS OF CONTROL OF LEGS [None]
  - DRUG EFFECT DECREASED [None]
